FAERS Safety Report 25165021 (Version 2)
Quarter: 2025Q2

REPORT INFORMATION
  Report Type: Spontaneous
  Country: US (occurrence: US)
  Receive Date: 20250406
  Receipt Date: 20250422
  Transmission Date: 20250716
  Serious: No
  Sender: BAUSCH AND LOMB
  Company Number: US-BAUSCHBL-2025BNL005498

PATIENT
  Sex: Female

DRUGS (2)
  1. XIIDRA [Suspect]
     Active Substance: LIFITEGRAST
     Indication: Dry eye
     Dosage: 1 DROP IN EACH EYE
     Route: 047
     Dates: start: 202412
  2. XIIDRA [Suspect]
     Active Substance: LIFITEGRAST
     Route: 047
     Dates: start: 20250323

REACTIONS (5)
  - Pain [Unknown]
  - Ill-defined disorder [Unknown]
  - Sinus disorder [Unknown]
  - Ocular discomfort [Recovered/Resolved]
  - Product temperature excursion issue [Unknown]
